FAERS Safety Report 8421221-7 (Version None)
Quarter: 2012Q2

REPORT INFORMATION
  Report Type: 
  Country: None (occurrence: None)
  Receive Date: 20120608
  Receipt Date: 20120605
  Transmission Date: 20120825
  Serious: No
  Sender: FDA-Public Use
  Company Number: US-BAYER-2012-056258

PATIENT
  Age: 43 Year
  Sex: Female

DRUGS (2)
  1. MIRENA [Suspect]
     Indication: PRODUCT USED FOR UNKNOWN INDICATION
     Dosage: 20 ?G/D, CONT
     Dates: start: 20111208, end: 20120603
  2. MIRENA [Suspect]
     Dosage: 20 ?G/D, CONT
     Dates: start: 20120605

REACTIONS (2)
  - DEVICE EXPULSION [None]
  - ABDOMINAL PAIN LOWER [None]
